FAERS Safety Report 16358738 (Version 1)
Quarter: 2019Q2

REPORT INFORMATION
  Report Type: Spontaneous
  Country: AU (occurrence: AU)
  Receive Date: 20190527
  Receipt Date: 20190527
  Transmission Date: 20190711
  Serious: Yes (Other)
  Sender: FDA-Public Use
  Company Number: PHHY2019AU121184

PATIENT

DRUGS (2)
  1. COSENTYX [Suspect]
     Active Substance: SECUKINUMAB
     Indication: PSORIATIC ARTHROPATHY
  2. COSENTYX [Suspect]
     Active Substance: SECUKINUMAB
     Indication: PSORIASIS
     Route: 065

REACTIONS (6)
  - Acral lentiginous melanoma [Unknown]
  - Macule [Unknown]
  - Skin hyperpigmentation [Unknown]
  - Alpha tumour necrosis factor decreased [Unknown]
  - Drug ineffective [Unknown]
  - Interleukin level decreased [Unknown]
